FAERS Safety Report 5762734-6 (Version None)
Quarter: 2008Q2

REPORT INFORMATION
  Report Type: 
  Country: None (occurrence: None)
  Receive Date: 20080609
  Receipt Date: 20080603
  Transmission Date: 20081010
  Serious: Yes (Life-Threatening)
  Sender: FDA-Public Use
  Company Number: JP-ASTRAZENECA-2008AP04218

PATIENT
  Age: 25894 Day
  Sex: Male
  Weight: 73 kg

DRUGS (9)
  1. OMEPRAL [Suspect]
     Indication: GASTRIC ULCER
     Route: 048
     Dates: start: 20080516, end: 20080518
  2. OMEPRAL [Suspect]
     Route: 048
     Dates: start: 20080527, end: 20080529
  3. OMEPRAL [Suspect]
     Dosage: 1 - 2 TIMES A DAY
     Route: 041
     Dates: start: 20080517, end: 20080526
  4. PREDONINE [Concomitant]
     Indication: DRUG ERUPTION
     Dosage: THE UNIT DOSE WAS TAPERED FROM 40 MG
     Route: 041
     Dates: start: 20080515, end: 20080530
  5. MIYA BM [Concomitant]
     Indication: STOMACH DISCOMFORT
     Dosage: UNIT DOSE UNKNOWN
     Route: 048
     Dates: start: 20080515, end: 20080523
  6. MUCOSTA [Concomitant]
     Indication: STOMACH DISCOMFORT
     Route: 048
     Dates: start: 20080515, end: 20080523
  7. LOPERAMIDE HCL [Concomitant]
     Indication: DIARRHOEA
     Dosage: UNIT DOSE UNKNOWN
     Route: 048
     Dates: start: 20080519, end: 20080531
  8. PENTAZOCINE LACTATE [Concomitant]
     Indication: PAIN
     Dosage: AS REQUIRED
     Route: 030
     Dates: start: 20080523
  9. PRIMPERAN TAB [Concomitant]
     Indication: NAUSEA
     Dosage: 1 - 3 TIMES A DAY
     Route: 048
     Dates: start: 20080529, end: 20080602

REACTIONS (1)
  - BONE MARROW FAILURE [None]
